FAERS Safety Report 16939061 (Version 2)
Quarter: 2019Q4

REPORT INFORMATION
  Report Type: Spontaneous
  Country: US (occurrence: US)
  Receive Date: 20191020
  Receipt Date: 20191212
  Transmission Date: 20200122
  Serious: Yes (Other)
  Sender: FDA-Public Use
  Company Number: US-009507513-1910USA006549

PATIENT
  Age: 35 Year
  Sex: Female

DRUGS (3)
  1. NEXPLANON [Suspect]
     Active Substance: ETONOGESTREL
     Dosage: THE ROD
     Route: 059
     Dates: start: 20190923, end: 20191004
  2. NEXPLANON [Suspect]
     Active Substance: ETONOGESTREL
     Dosage: THE ROD
     Route: 059
     Dates: end: 20190923
  3. NEXPLANON [Suspect]
     Active Substance: ETONOGESTREL
     Dosage: IMPLANT
     Route: 059
     Dates: start: 201910

REACTIONS (3)
  - Product quality issue [Unknown]
  - Cellulitis [Recovered/Resolved]
  - Device difficult to use [Recovered/Resolved]

NARRATIVE: CASE EVENT DATE: 20190923
